FAERS Safety Report 25467146 (Version 1)
Quarter: 2025Q2

REPORT INFORMATION
  Report Type: Spontaneous
  Country: US (occurrence: US)
  Receive Date: 20250623
  Receipt Date: 20250623
  Transmission Date: 20250717
  Serious: No
  Sender: MACLEODS
  Company Number: US-MACLEODS PHARMA-MAC2025053587

PATIENT

DRUGS (1)
  1. CLOPIDOGREL [Suspect]
     Active Substance: CLOPIDOGREL BISULFATE
     Indication: Anticoagulant therapy
     Dosage: NDC 16714-052-03
     Route: 048

REACTIONS (4)
  - Contusion [Unknown]
  - Blood urine present [Unknown]
  - Fatigue [Unknown]
  - Asthenia [Unknown]
